FAERS Safety Report 5309411-3 (Version None)
Quarter: 2007Q2

REPORT INFORMATION
  Report Type: 
  Country: None (occurrence: None)
  Receive Date: 20070424
  Receipt Date: 20070424
  Transmission Date: 20071010
  Serious: Yes (Other)
  Sender: FDA-Public Use
  Company Number: None

PATIENT
  Age: 9 Year
  Sex: Female
  Weight: 25.855 kg

DRUGS (1)
  1. PULMICORT TURBIHALER 200 [Suspect]
     Indication: BRONCHIAL HYPERREACTIVITY
     Dosage: 2 INHALATIONS BID
     Route: 055
     Dates: start: 20060920, end: 20070330

REACTIONS (1)
  - TOOTH DISCOLOURATION [None]
